FAERS Safety Report 13807481 (Version 1)
Quarter: 2017Q3

REPORT INFORMATION
  Report Type: Spontaneous
  Country: GB (occurrence: GB)
  Receive Date: 20170728
  Receipt Date: 20170728
  Transmission Date: 20171127
  Serious: Yes (Disabling)
  Sender: FDA-Public Use
  Company Number: GB-TEVA-789527ACC

PATIENT
  Age: 72 Year
  Sex: Female
  Weight: 80 kg

DRUGS (6)
  1. TRIAMCINOLONE [Suspect]
     Active Substance: TRIAMCINOLONE
     Dosage: TRIAMCINOLONE DILUTED 1% LIDOCAINE.
     Route: 051
     Dates: start: 20160705, end: 20160705
  2. LIDOCAINE. [Suspect]
     Active Substance: LIDOCAINE
     Dosage: TRIAMCINOLONE DILUTED 1% LIDOCAINE.
     Route: 051
     Dates: start: 20160705, end: 20160705
  3. THEICAL-D3 [Concomitant]
  4. PARACETAMOL [Concomitant]
     Active Substance: ACETAMINOPHEN
  5. TRAMADOL HYDROCHLORIDE. [Concomitant]
     Active Substance: TRAMADOL HYDROCHLORIDE
  6. CANDESARTAN. [Concomitant]
     Active Substance: CANDESARTAN

REACTIONS (1)
  - Muscular weakness [Not Recovered/Not Resolved]
